FAERS Safety Report 13484965 (Version 1)
Quarter: 2017Q2

REPORT INFORMATION
  Report Type: Spontaneous
  Country: US (occurrence: US)
  Receive Date: 20170425
  Receipt Date: 20170425
  Transmission Date: 20170830
  Serious: No
  Sender: FDA-Public Use
  Company Number: US-ASTRAZENECA-2017SE41753

PATIENT
  Age: 25245 Day
  Sex: Female
  Weight: 57.2 kg

DRUGS (2)
  1. BYETTA [Suspect]
     Active Substance: EXENATIDE
     Indication: BLOOD INSULIN ABNORMAL
     Route: 058
     Dates: start: 200706
  2. METFORMIN [Concomitant]
     Active Substance: METFORMIN HYDROCHLORIDE
     Indication: BLOOD INSULIN ABNORMAL
     Route: 048
     Dates: start: 200705

REACTIONS (4)
  - Drug ineffective [Unknown]
  - Weight fluctuation [Unknown]
  - Intentional product misuse [Unknown]
  - Incorrect product storage [Unknown]

NARRATIVE: CASE EVENT DATE: 20170409
